FAERS Safety Report 23763615 (Version 1)
Quarter: 2024Q2

REPORT INFORMATION
  Report Type: Spontaneous
  Country: US (occurrence: None)
  Receive Date: 20240419
  Receipt Date: 20240419
  Transmission Date: 20240715
  Serious: Yes (Other)
  Sender: FDA-Public Use
  Company Number: None

PATIENT
  Age: 42 Year
  Sex: Female
  Weight: 96.3 kg

DRUGS (1)
  1. ISOVUE 370 [Suspect]
     Active Substance: IOPAMIDOL
     Dosage: FREQUENCY : AS NEEDED;?
     Route: 042

REACTIONS (1)
  - Infusion site rash [None]

NARRATIVE: CASE EVENT DATE: 20240415
